FAERS Safety Report 23819556 (Version 1)
Quarter: 2024Q2

REPORT INFORMATION
  Report Type: Spontaneous
  Country: US (occurrence: US)
  Receive Date: 20240506
  Receipt Date: 20240506
  Transmission Date: 20240716
  Serious: No
  Sender: FDA-Public Use
  Company Number: US-AMGEN-USASP2024087153

PATIENT
  Age: 69 Year
  Sex: Female

DRUGS (1)
  1. REPATHA [Suspect]
     Active Substance: EVOLOCUMAB
     Indication: Blood cholesterol increased
     Dosage: 140 MILLIGRAM, Q2WK
     Route: 058
     Dates: start: 20240206

REACTIONS (9)
  - Pain [Unknown]
  - Weight decreased [Unknown]
  - Waist circumference increased [Unknown]
  - Oedema [Unknown]
  - Musculoskeletal disorder [Unknown]
  - Device difficult to use [Unknown]
  - Muscle spasms [Unknown]
  - Sinusitis [Unknown]
  - Injection site pain [Unknown]

NARRATIVE: CASE EVENT DATE: 20240206
